FAERS Safety Report 6836244-9 (Version None)
Quarter: 2010Q3

REPORT INFORMATION
  Report Type: 
  Country: None (occurrence: None)
  Receive Date: 20100713
  Receipt Date: 20100712
  Transmission Date: 20110219
  Serious: Yes (Hospitalization)
  Sender: FDA-Public Use
  Company Number: DE-SANOFI-AVENTIS-2010SA036059

PATIENT
  Age: 66 Year
  Sex: Male
  Weight: 88 kg

DRUGS (7)
  1. MULTAQ [Suspect]
     Indication: ATRIAL FIBRILLATION
     Route: 048
     Dates: start: 20100608, end: 20100610
  2. SIOFOR [Concomitant]
     Indication: DIABETES MELLITUS
     Route: 048
  3. ALLOPURINOL [Concomitant]
     Indication: HYPERURICAEMIA
     Dosage: DOSAGE: 1/2 TABLET DAILY.
     Route: 048
  4. DELIX PLUS [Concomitant]
     Indication: HYPERTENSION
     Route: 048
  5. PANTOZOL [Concomitant]
     Indication: GASTROINTESTINAL DISORDER
     Route: 048
  6. NEBIVOLOL HCL [Concomitant]
     Indication: HYPERTENSION
     Route: 048
  7. ANTIBIOTICS [Concomitant]
     Route: 065

REACTIONS (4)
  - BLOOD CREATININE INCREASED [None]
  - GLOMERULAR FILTRATION RATE DECREASED [None]
  - HYPERKALAEMIA [None]
  - RENAL FAILURE ACUTE [None]
